FAERS Safety Report 5496894-1 (Version None)
Quarter: 2007Q4

REPORT INFORMATION
  Report Type: 
  Country: None (occurrence: None)
  Receive Date: 20071025
  Receipt Date: 20070829
  Transmission Date: 20080405
  Serious: No
  Sender: FDA-Public Use
  Company Number: A0678591A

PATIENT
  Age: 51 Year
  Sex: Female

DRUGS (3)
  1. ADVAIR DISKUS 100/50 [Suspect]
     Indication: COUGH
     Route: 055
     Dates: start: 20070825, end: 20070826
  2. BLOOD PRESSURE MEDICATION [Concomitant]
  3. ZETIA [Concomitant]

REACTIONS (3)
  - CHEST PAIN [None]
  - FEELING JITTERY [None]
  - ORAL DISCOMFORT [None]
